FAERS Safety Report 17609264 (Version 1)
Quarter: 2020Q2

REPORT INFORMATION
  Report Type: Spontaneous
  Country: DE (occurrence: DE)
  Receive Date: 20200401
  Receipt Date: 20200401
  Transmission Date: 20200713
  Serious: Yes (Other)
  Sender: FDA-Public Use
  Company Number: DE-TEVA-2020-DE-1214171

PATIENT
  Age: 36 Year
  Sex: Female
  Weight: 90 kg

DRUGS (3)
  1. VALSARTAN. [Suspect]
     Active Substance: VALSARTAN
     Indication: HYPERTENSION
     Dosage: 160 MILLIGRAM DAILY;
     Route: 048
     Dates: start: 20190311, end: 20190616
  2. CANDESARTAN. [Interacting]
     Active Substance: CANDESARTAN
     Indication: HYPERTENSION
     Dosage: 16 MILLIGRAM DAILY;
     Route: 048
     Dates: start: 20190617, end: 20190925
  3. MIFEGYNE [Concomitant]
     Active Substance: MIFEPRISTONE
     Indication: ABORTION INDUCED
     Dosage: 600 MILLIGRAM DAILY;
     Route: 048
     Dates: start: 20191017, end: 20191017

REACTIONS (2)
  - Drug interaction [Unknown]
  - Oligohydramnios [Not Recovered/Not Resolved]
